FAERS Safety Report 17291479 (Version 2)
Quarter: 2020Q1

REPORT INFORMATION
  Report Type: Report from Study
  Country: None (occurrence: BR)
  Receive Date: 20200121
  Receipt Date: 20200218
  Transmission Date: 20200409
  Serious: Yes (Hospitalization, Other)
  Sender: FDA-Public Use
  Company Number: BR-ABBVIE-20K-020-3229067-00

PATIENT
  Age: 67 Year
  Sex: Male
  Weight: 90 kg

DRUGS (5)
  1. PREDNISONE. [Concomitant]
     Active Substance: PREDNISONE
     Indication: PRODUCT USED FOR UNKNOWN INDICATION
  2. METHOTREXATE. [Concomitant]
     Active Substance: METHOTREXATE
     Indication: PRODUCT USED FOR UNKNOWN INDICATION
  3. METHOTREXATE. [Concomitant]
     Active Substance: METHOTREXATE
     Indication: PRODUCT USED FOR UNKNOWN INDICATION
  4. PREDNISONE. [Concomitant]
     Active Substance: PREDNISONE
     Indication: PRODUCT USED FOR UNKNOWN INDICATION
  5. HUMIRA [Suspect]
     Active Substance: ADALIMUMAB
     Indication: PSORIATIC ARTHROPATHY
     Route: 058
     Dates: start: 20191212

REACTIONS (12)
  - Post procedural haemorrhage [Unknown]
  - Pain [Recovering/Resolving]
  - Psoriatic arthropathy [Unknown]
  - Haemoglobin decreased [Unknown]
  - Immunodeficiency [Unknown]
  - Hypotension [Unknown]
  - Inflammatory marker increased [Unknown]
  - Intentional product misuse [Unknown]
  - Malaise [Unknown]
  - Blood iron decreased [Unknown]
  - Haemorrhoids [Unknown]
  - Pyrexia [Unknown]

NARRATIVE: CASE EVENT DATE: 20191223
